FAERS Safety Report 17048171 (Version 4)
Quarter: 2019Q4

REPORT INFORMATION
  Report Type: Spontaneous
  Country: NL (occurrence: NL)
  Receive Date: 20191119
  Receipt Date: 20191201
  Transmission Date: 20200122
  Serious: Yes (Hospitalization, Disabling, Other)
  Sender: FDA-Public Use
  Company Number: NL-009507513-1907NLD011286

PATIENT
  Age: 83 Year
  Sex: Male

DRUGS (7)
  1. CARBIDOPA (+) LEVODOPA [Suspect]
     Active Substance: CARBIDOPA\LEVODOPA
     Indication: PARKINSON^S DISEASE
     Dosage: UNK
     Route: 048
  2. SINEMET [Suspect]
     Active Substance: CARBIDOPA\LEVODOPA
     Dosage: 3 PILLS 6 TIMES A DAY
     Dates: start: 2018, end: 2018
  3. RASAGILINE. [Concomitant]
     Active Substance: RASAGILINE
     Dosage: 1 TABLET PER DAY
     Route: 048
  4. SINEMET [Suspect]
     Active Substance: CARBIDOPA\LEVODOPA
     Indication: PARKINSON^S DISEASE
     Dosage: 2 TABLETS AT 09:00, 2 TABLETS AT 13:00, 2 TABLETS AT 17:00, 2 TABLETS AT 21:00, 2 TABLETS DURING THE
     Dates: start: 2003
  5. SINEMET [Suspect]
     Active Substance: CARBIDOPA\LEVODOPA
     Indication: PARKINSON^S DISEASE
     Dosage: 4 PILLS
     Dates: start: 2018, end: 2018
  6. SYMMETREL [Concomitant]
     Active Substance: AMANTADINE HYDROCHLORIDE
     Dosage: 3 TABLETS PER DAY,  (AT 9:00, 13:00 AND 21:00)
     Route: 048
  7. SINEMET CR [Suspect]
     Active Substance: CARBIDOPA\LEVODOPA
     Indication: PARKINSON^S DISEASE
     Dosage: UNK
     Route: 048
     Dates: start: 2018, end: 2018

REACTIONS (26)
  - Malaise [Unknown]
  - Dizziness [Unknown]
  - Ocular hyperaemia [Unknown]
  - Balance disorder [Unknown]
  - Headache [Unknown]
  - Syncope [Unknown]
  - Nausea [Unknown]
  - Peripheral swelling [Unknown]
  - Mental disorder [Unknown]
  - Product colour issue [Unknown]
  - Gait inability [Not Recovered/Not Resolved]
  - Fluid retention [Unknown]
  - Product availability issue [Recovered/Resolved]
  - Overdose [Unknown]
  - Off label use [Unknown]
  - Malaise [Unknown]
  - Polyuria [Unknown]
  - Fluid retention [Unknown]
  - Parkinson^s disease [Unknown]
  - Erythema [Unknown]
  - Loss of personal independence in daily activities [Unknown]
  - Hypertension [Unknown]
  - Incontinence [Unknown]
  - Swelling [Unknown]
  - Pain in extremity [Unknown]
  - Product size issue [Unknown]

NARRATIVE: CASE EVENT DATE: 2018
